FAERS Safety Report 11643033 (Version 1)
Quarter: 2015Q4

REPORT INFORMATION
  Report Type: Spontaneous
  Country: GB (occurrence: GB)
  Receive Date: 20151020
  Receipt Date: 20151020
  Transmission Date: 20160304
  Serious: Yes (Other)
  Sender: FDA-Public Use
  Company Number: GB-ACCORD-034556

PATIENT
  Age: 82 Year
  Sex: Male
  Weight: 64 kg

DRUGS (9)
  1. SIMVASTATIN. [Concomitant]
     Active Substance: SIMVASTATIN
     Dosage: AT NIGHT
     Dates: start: 20140703
  2. ALLOPURINOL/ALLOPURINOL SODIUM [Suspect]
     Active Substance: ALLOPURINOL SODIUM
     Indication: PRODUCT USED FOR UNKNOWN INDICATION
     Dates: start: 20150827
  3. NAPROXEN. [Concomitant]
     Active Substance: NAPROXEN
     Dosage: AFTER FOOD
     Dates: start: 20150827, end: 20150828
  4. ATENOLOL/ATENOLOL HYDROCHLORIDE [Concomitant]
     Dosage: MORNING
     Dates: start: 20140703
  5. OMEPRAZOLE. [Concomitant]
     Active Substance: OMEPRAZOLE
     Dates: start: 20150827
  6. CLOPIDOGREL [Suspect]
     Active Substance: CLOPIDOGREL BISULFATE
     Indication: PRODUCT USED FOR UNKNOWN INDICATION
     Dates: start: 20150827
  7. ACETYLSALICYLIC ACID [Concomitant]
     Active Substance: ASPIRIN
     Dates: start: 20140703, end: 20150827
  8. CHLORPHENAMINE/CHLORPHENAMINE MALEATE/CHLORPHENAMINE RESINATE/CHLORPHENAMINE TANNATE [Concomitant]
     Dosage: TAKE ONE EVERY 4-6 HRS
     Dates: start: 20150918, end: 20150925
  9. DOXAZOSIN/DOXAZOSIN MESILATE [Concomitant]
     Dosage: TAKE TWO TABLETS IN THE MORNING AND ONE AT TEATIME
     Dates: start: 20140703

REACTIONS (2)
  - Dyspnoea [Recovering/Resolving]
  - Rash pruritic [Recovering/Resolving]

NARRATIVE: CASE EVENT DATE: 20150928
